FAERS Safety Report 25310944 (Version 2)
Quarter: 2025Q2

REPORT INFORMATION
  Report Type: Spontaneous
  Country: TN (occurrence: TN)
  Receive Date: 20250514
  Receipt Date: 20250521
  Transmission Date: 20250717
  Serious: Yes (Death)
  Sender: BOEHRINGER INGELHEIM
  Company Number: TN-BoehringerIngelheim-2025-BI-008321

PATIENT
  Sex: Male

DRUGS (1)
  1. OFEV [Suspect]
     Active Substance: NINTEDANIB
     Indication: Idiopathic pulmonary fibrosis

REACTIONS (3)
  - Death [Fatal]
  - Diarrhoea [Not Recovered/Not Resolved]
  - Vasculitis [Not Recovered/Not Resolved]

NARRATIVE: CASE EVENT DATE: 20250401
